FAERS Safety Report 5410540-4 (Version None)
Quarter: 2007Q3

REPORT INFORMATION
  Report Type: 
  Country: None (occurrence: None)
  Receive Date: 20070810
  Receipt Date: 20070222
  Transmission Date: 20080115
  Serious: No
  Sender: FDA-Public Use
  Company Number: A0640588A

PATIENT
  Age: 22 Year
  Sex: Male

DRUGS (2)
  1. PAXIL [Suspect]
     Indication: ANXIETY DISORDER
     Route: 048
  2. NO CONCURRENT MEDICATION [Concomitant]

REACTIONS (8)
  - ANOREXIA [None]
  - BLOOD PRESSURE ABNORMAL [None]
  - DEHYDRATION [None]
  - DRUG INEFFECTIVE [None]
  - PALPITATIONS [None]
  - PERFORMANCE STATUS DECREASED [None]
  - PHOTOSENSITIVITY REACTION [None]
  - SOMNOLENCE [None]
